FAERS Safety Report 6089274-1 (Version None)
Quarter: 2009Q1

REPORT INFORMATION
  Report Type: 
  Country: None (occurrence: None)
  Receive Date: 20090224
  Receipt Date: 20090218
  Transmission Date: 20090719
  Serious: Yes (Death)
  Sender: FDA-Public Use
  Company Number: JP-MERCK-0902USA02737

PATIENT
  Age: 67 Year
  Sex: Male

DRUGS (2)
  1. STROMECTOL [Suspect]
     Indication: ACARODERMATITIS
     Route: 048
     Dates: start: 20090127, end: 20090127
  2. ALLEGRA [Concomitant]
     Indication: PRURITUS
     Route: 048

REACTIONS (4)
  - HYPERSENSITIVITY [None]
  - PULMONARY OEDEMA [None]
  - RASH [None]
  - STATUS EPILEPTICUS [None]
